FAERS Safety Report 12799335 (Version 1)
Quarter: 2016Q3

REPORT INFORMATION
  Report Type: Report from Study
  Country: RO (occurrence: RO)
  Receive Date: 20160930
  Receipt Date: 20160930
  Transmission Date: 20161109
  Serious: Yes (Other)
  Sender: FDA-Public Use
  Company Number: RO-UCBSA-2016037930

PATIENT

DRUGS (2)
  1. LEVETIRACETAM. [Suspect]
     Active Substance: LEVETIRACETAM
     Indication: PRODUCT USED FOR UNKNOWN INDICATION
     Dosage: LEV 500 OR 1000 MG DILUTED IN 100 ML 0.9% SALINE SOLUTION, MAINTENANCE DOSE MAXIMUM OF 3000 MG/24 H
     Route: 042
  2. DIAZEPAM. [Concomitant]
     Active Substance: DIAZEPAM
     Indication: PRODUCT USED FOR UNKNOWN INDICATION
     Dosage: 5 MG AT A DOSE RATE OF 2 MG/MIN, REPEATED AT 10 MINUTES
     Route: 042

REACTIONS (1)
  - Respiratory distress [Unknown]
